FAERS Safety Report 17555050 (Version 1)
Quarter: 2020Q1

REPORT INFORMATION
  Report Type: Spontaneous
  Country: AF (occurrence: US)
  Receive Date: 20200318
  Receipt Date: 20200318
  Transmission Date: 20200409
  Serious: Yes (Death, Other)
  Sender: FDA-Public Use
  Company Number: AF-BRISTOL-MYERS SQUIBB COMPANY-BMS-2020-023555

PATIENT
  Age: 68 Year
  Sex: Female
  Weight: 57.14 kg

DRUGS (1)
  1. ELIQUIS [Suspect]
     Active Substance: APIXABAN
     Indication: CEREBROVASCULAR ACCIDENT PROPHYLAXIS
     Dosage: 5 MILLIGRAM, BID
     Route: 048

REACTIONS (3)
  - Coronary artery disease [Fatal]
  - Blood glucose increased [Unknown]
  - Renal failure [Unknown]

NARRATIVE: CASE EVENT DATE: 20191117
